FAERS Safety Report 4665021-2 (Version None)
Quarter: 2005Q2

REPORT INFORMATION
  Report Type: 
  Country: None (occurrence: None)
  Receive Date: 20050518
  Receipt Date: 20050518
  Transmission Date: 20051028
  Serious: Yes (Hospitalization)
  Sender: FDA-Public Use
  Company Number: None

PATIENT
  Age: 81 Year
  Sex: Male
  Weight: 62.6 kg

DRUGS (11)
  1. AMIODARONE [Suspect]
     Indication: VENTRICULAR TACHYCARDIA
     Dosage: 600 DAILY PO
     Route: 048
     Dates: start: 20040801, end: 20050216
  2. ASPIRIN [Concomitant]
  3. PROTONIX [Concomitant]
  4. IMDUR [Concomitant]
  5. ZOCOR [Concomitant]
  6. INSULIN [Concomitant]
  7. CEFTIN [Concomitant]
  8. LASIX [Concomitant]
  9. COREG [Concomitant]
  10. HYDRALAZINE HCL [Concomitant]
  11. ADVAIR DISKUS 100/50 [Concomitant]

REACTIONS (4)
  - HYPERHIDROSIS [None]
  - PULMONARY FIBROSIS [None]
  - PULMONARY TOXICITY [None]
  - RESPIRATORY FAILURE [None]
